FAERS Safety Report 8769728 (Version 3)
Quarter: 2013Q3

REPORT INFORMATION
  Report Type: Report from Study
  Country: JP (occurrence: JP)
  Receive Date: 20120905
  Receipt Date: 20130722
  Transmission Date: 20140515
  Serious: Yes (Hospitalization)
  Sender: FDA-Public Use
  Company Number: JP-009507513-2012SP017380

PATIENT
  Age: 50 Year
  Sex: Male
  Weight: 75 kg

DRUGS (10)
  1. PEGINTRON [Suspect]
     Indication: CHRONIC HEPATITIS C
     Dosage: 1.5 MICROGRAM PER KILOGRAM, QW
     Route: 058
     Dates: start: 20120203, end: 20120712
  2. REBETOL [Suspect]
     Indication: CHRONIC HEPATITIS C
     Dosage: 800 MG, QD, CUMULATIVE DOSE: 1600 MG
     Route: 048
     Dates: start: 20120203, end: 20120307
  3. REBETOL [Suspect]
     Dosage: 600 MG, QD, CUMULATIVE DOSE 1600
     Route: 048
     Dates: start: 20120308, end: 20120313
  4. REBETOL [Suspect]
     Dosage: 400 MG, QD, CUMULATIVE DOSE 1600
     Route: 048
     Dates: start: 20120314, end: 20120501
  5. REBETOL [Suspect]
     Dosage: 600 MG QD, CUMULATIVE DOSE 1600
     Route: 048
     Dates: start: 20120502, end: 20120523
  6. REBETOL [Suspect]
     Dosage: 800 MG QD, CUMULATIVE DOSE 1600
     Route: 048
     Dates: start: 20120524, end: 20120606
  7. REBETOL [Suspect]
     Dosage: 600 MG QD, CUMULATIVE DOSE 1600
     Route: 048
     Dates: start: 20120607, end: 20120719
  8. TELAVIC [Suspect]
     Indication: CHRONIC HEPATITIS C
     Dosage: 2250 MG, QD
     Route: 048
     Dates: start: 20120203, end: 20120306
  9. TELAVIC [Suspect]
     Dosage: 1500 MG, QD
     Route: 048
     Dates: start: 20120307, end: 20120426
  10. TELAVIC [Suspect]
     Dosage: DAILY DOSE UNKNOWN
     Route: 048

REACTIONS (1)
  - Abdominal discomfort [Recovered/Resolved]
